FAERS Safety Report 6210013-5 (Version None)
Quarter: 2009Q2

REPORT INFORMATION
  Report Type: 
  Country: None (occurrence: None)
  Receive Date: 20090527
  Receipt Date: 20090521
  Transmission Date: 20091009
  Serious: Yes (Hospitalization, Disabling)
  Sender: FDA-Public Use
  Company Number: 2009SP009300

PATIENT
  Age: 51 Year
  Sex: Female
  Weight: 68.2 kg

DRUGS (3)
  1. PEGETRON        (PEGINTERFERON ALFA-2B W/RIBAVIRIN) [Suspect]
     Indication: HEPATITIS C
     Dosage: 100 MCG; SC; 1000 MG; PO
     Route: 058
     Dates: start: 20090315, end: 20090420
  2. ACETYLSALICYLIC ACID [Concomitant]
  3. INSULIN ASPART [Concomitant]

REACTIONS (5)
  - ANAEMIA [None]
  - ARTERIOSCLEROSIS [None]
  - CEREBRAL INFARCTION [None]
  - FEAR [None]
  - FEELING ABNORMAL [None]
